FAERS Safety Report 10405982 (Version 1)
Quarter: 2014Q3

REPORT INFORMATION
  Report Type: Spontaneous
  Country: US (occurrence: US)
  Receive Date: 20140825
  Receipt Date: 20140825
  Transmission Date: 20150326
  Serious: No
  Sender: FDA-Public Use
  Company Number: US-AMGEN INC.-USASP2014063587

PATIENT
  Age: 51 Year
  Sex: Male
  Weight: 84.81 kg

DRUGS (1)
  1. ENBREL [Suspect]
     Active Substance: ETANERCEPT
     Indication: RHEUMATOID ARTHRITIS
     Dosage: 50 MG, QWK
     Route: 058
     Dates: start: 201404, end: 201406

REACTIONS (3)
  - Alopecia [Recovered/Resolved]
  - Swelling face [Unknown]
  - Local swelling [Unknown]

NARRATIVE: CASE EVENT DATE: 2014
